FAERS Safety Report 4895760-X (Version None)
Quarter: 2006Q1

REPORT INFORMATION
  Report Type: 
  Country: None (occurrence: None)
  Receive Date: 20060123
  Receipt Date: 20060111
  Transmission Date: 20060701
  Serious: Yes (Other)
  Sender: FDA-Public Use
  Company Number: 2006BH000468

PATIENT
  Age: 91 Year
  Sex: Male

DRUGS (1)
  1. IGIV GENERIC [Suspect]
     Indication: IMMUNODEFICIENCY COMMON VARIABLE
     Dosage: 0.6 MG/KG/EVERY 4 WK;IV
     Route: 042

REACTIONS (2)
  - CEREBROVASCULAR ACCIDENT [None]
  - TRANSIENT ISCHAEMIC ATTACK [None]
